FAERS Safety Report 8246223-5 (Version None)
Quarter: 2012Q1

REPORT INFORMATION
  Report Type: 
  Country: None (occurrence: None)
  Receive Date: 20120330
  Receipt Date: 20100303
  Transmission Date: 20120608
  Serious: No
  Sender: FDA-Public Use
  Company Number: US-MYLANLABS-2010S1002225

PATIENT
  Age: 82 Year
  Sex: Female
  Weight: 52.16 kg

DRUGS (8)
  1. ALBUTEROL SULATE [Suspect]
     Dosage: TID-QID
     Route: 055
     Dates: start: 20100205
  2. PEPCID [Concomitant]
     Indication: GASTROOESOPHAGEAL REFLUX DISEASE
     Route: 048
  3. SPIRIVA [Concomitant]
     Indication: EMPHYSEMA
     Route: 055
     Dates: start: 20040101
  4. ALBUTEROL SULATE [Suspect]
     Indication: EMPHYSEMA
     Dosage: TID-QID
     Route: 055
     Dates: start: 20100205
  5. ALBUTEROL SULATE [Suspect]
     Dosage: TID-QID
     Route: 055
     Dates: start: 20100205
  6. ADVAIR DISKUS 100/50 [Concomitant]
     Indication: EMPHYSEMA
     Route: 055
     Dates: start: 20040101
  7. ALBUTEROL SULATE [Suspect]
     Indication: CHRONIC OBSTRUCTIVE PULMONARY DISEASE
     Dosage: TID-QID
     Route: 055
     Dates: start: 20100205
  8. ZOCOR [Concomitant]
     Indication: EMPHYSEMA
     Route: 048

REACTIONS (2)
  - GLOSSODYNIA [None]
  - THROAT IRRITATION [None]
